FAERS Safety Report 6846641-3 (Version None)
Quarter: 2010Q3

REPORT INFORMATION
  Report Type: 
  Country: None (occurrence: None)
  Receive Date: 20100715
  Receipt Date: 20080126
  Transmission Date: 20110219
  Serious: No
  Sender: FDA-Public Use
  Company Number: US-PFIZER INC-2007078579

PATIENT
  Sex: Male
  Weight: 104.54 kg

DRUGS (1)
  1. CHANTIX [Suspect]
     Indication: SMOKING CESSATION THERAPY
     Dates: start: 20070801, end: 20070901

REACTIONS (4)
  - ABNORMAL DREAMS [None]
  - FATIGUE [None]
  - LOSS OF LIBIDO [None]
  - THERAPEUTIC RESPONSE UNEXPECTED [None]
